FAERS Safety Report 10933920 (Version 1)
Quarter: 2015Q1

REPORT INFORMATION
  Report Type: Report from Study
  Country: US (occurrence: US)
  Receive Date: 20150320
  Receipt Date: 20150320
  Transmission Date: 20150721
  Serious: Yes (Death, Hospitalization, Other)
  Sender: FDA-Public Use
  Company Number: US-AMGEN-USASL2015026050

PATIENT
  Age: 83 Year
  Sex: Female
  Weight: 54.42 kg

DRUGS (1)
  1. ENBREL [Suspect]
     Active Substance: ETANERCEPT
     Indication: RHEUMATOID ARTHRITIS
     Dosage: 50 MG, QWK
     Route: 058
     Dates: end: 201502

REACTIONS (7)
  - Pain [Unknown]
  - Hospitalisation [Unknown]
  - Death [Fatal]
  - Pneumonia [Unknown]
  - Anxiety [Unknown]
  - Oesophageal carcinoma [Unknown]
  - Lung neoplasm malignant [Unknown]

NARRATIVE: CASE EVENT DATE: 201502
